FAERS Safety Report 4802835-X (Version None)
Quarter: 2005Q4

REPORT INFORMATION
  Report Type: 
  Country: None (occurrence: None)
  Receive Date: 20051019
  Receipt Date: 20050922
  Transmission Date: 20060501
  Serious: Yes (Hospitalization)
  Sender: FDA-Public Use
  Company Number: 2005UW14135

PATIENT
  Age: 26697 Day
  Sex: Female
  Weight: 63.2 kg

DRUGS (9)
  1. ROSUVASTATIN [Suspect]
     Indication: PROPHYLAXIS
     Route: 048
     Dates: start: 20040621, end: 20040824
  2. ROSUVASTATIN [Suspect]
     Route: 048
     Dates: start: 20050711, end: 20050919
  3. PREDNISONE [Concomitant]
     Dates: start: 20040901
  4. ATENOLOL [Concomitant]
     Indication: HYPERTENSION
     Route: 048
     Dates: start: 19840101
  5. HYDROCHLOROTHIAZIDE [Concomitant]
     Indication: HYPERTENSION
     Route: 048
     Dates: start: 20020101
  6. ASPIRIN [Concomitant]
     Indication: PROPHYLAXIS
     Route: 048
     Dates: start: 20040401
  7. GLUCOSAMINE [Concomitant]
     Indication: OSTEOARTHRITIS
     Dosage: 750/600 MG
     Route: 048
     Dates: start: 19790101
  8. MULTI-VITAMIN [Concomitant]
     Indication: VITAMIN SUPPLEMENTATION
     Route: 048
     Dates: start: 19790101
  9. ES TYLENOL [Concomitant]
     Indication: ARTHRALGIA
     Route: 048
     Dates: start: 20040507

REACTIONS (2)
  - DISEASE RECURRENCE [None]
  - POLYMYALGIA RHEUMATICA [None]
